FAERS Safety Report 10525452 (Version 1)
Quarter: 2014Q4

REPORT INFORMATION
  Report Type: Report from Study
  Country: US (occurrence: US)
  Receive Date: 20141017
  Receipt Date: 20141017
  Transmission Date: 20150528
  Serious: Yes (Other)
  Sender: FDA-Public Use
  Company Number: US-SA-2014SA139803

PATIENT
  Age: 64 Year
  Sex: Female

DRUGS (2)
  1. SOLOSTAR [Concomitant]
     Active Substance: DEVICE
     Dates: start: 2010
  2. LANTUS SOLOSTAR [Suspect]
     Active Substance: INSULIN GLARGINE
     Indication: TYPE 2 DIABETES MELLITUS
     Dosage: FREQUENCY: QAM DOSE:40 UNIT(S)
     Route: 065
     Dates: start: 2010

REACTIONS (3)
  - Disability [Not Recovered/Not Resolved]
  - Visual impairment [Unknown]
  - Fall [Unknown]

NARRATIVE: CASE EVENT DATE: 201408
